FAERS Safety Report 9014851 (Version 2)
Quarter: 2013Q1

REPORT INFORMATION
  Report Type: Spontaneous
  Country: US (occurrence: US)
  Receive Date: 20130116
  Receipt Date: 20130304
  Transmission Date: 20140127
  Serious: Yes (Hospitalization)
  Sender: FDA-Public Use
  Company Number: US-BIOGENIDEC-2013BI003043

PATIENT
  Age: 35 Year
  Sex: Female

DRUGS (4)
  1. AVONEX [Suspect]
     Indication: MULTIPLE SCLEROSIS
     Route: 030
     Dates: start: 20071129, end: 20120805
  2. AVONEX [Suspect]
     Indication: MULTIPLE SCLEROSIS
     Route: 030
     Dates: start: 20120806
  3. DEPAKOTE [Concomitant]
  4. NEUROTIN [Concomitant]

REACTIONS (4)
  - Hyporesponsive to stimuli [Recovered/Resolved]
  - Convulsion [Recovered/Resolved with Sequelae]
  - Bacterial infection [Recovered/Resolved with Sequelae]
  - Diarrhoea [Recovered/Resolved with Sequelae]
